FAERS Safety Report 21315545 (Version 4)
Quarter: 2022Q4

REPORT INFORMATION
  Report Type: Report from Study
  Country: JP (occurrence: JP)
  Receive Date: 20220909
  Receipt Date: 20221006
  Transmission Date: 20230113
  Serious: Yes (Hospitalization, Other)
  Sender: FDA-Public Use
  Company Number: JP-BRISTOL-MYERS SQUIBB COMPANY-2022-097200

PATIENT
  Age: 70 Year
  Sex: Male
  Weight: 64 kg

DRUGS (21)
  1. CARBOPLATIN [Suspect]
     Active Substance: CARBOPLATIN
     Indication: Non-small cell lung cancer
     Dosage: MOST RECENT DOSE RECEIVED ON 24-AUG-2022.
     Route: 065
     Dates: start: 20220720, end: 20220824
  2. PACLITAXEL [Suspect]
     Active Substance: PACLITAXEL
     Indication: Non-small cell lung cancer
     Dosage: MOST RECENT DOSE RECEIVED ON 24-AUG-2022.
     Route: 065
     Dates: start: 20220720, end: 20220824
  3. BILASTINE [Concomitant]
     Active Substance: BILASTINE
     Indication: Drug eruption
     Dosage: DAILY; PER DAY
     Route: 048
     Dates: start: 20220818, end: 20220824
  4. BILASTINE [Concomitant]
     Active Substance: BILASTINE
  5. MAGNESIUM OXIDE [Concomitant]
     Active Substance: MAGNESIUM OXIDE
     Indication: Constipation
     Dosage: AS NEEDED
     Route: 048
     Dates: start: 20220722
  6. MAGNESIUM OXIDE [Concomitant]
     Active Substance: MAGNESIUM OXIDE
  7. SODIUM ALGINATE [Concomitant]
     Active Substance: SODIUM ALGINATE
     Indication: Radiation oesophagitis
     Dosage: 1 DF=60-UNITS NOT SPECIFIED, 3 TIMES PER DAY
     Route: 048
     Dates: start: 20220729
  8. SODIUM ALGINATE [Concomitant]
     Active Substance: SODIUM ALGINATE
  9. HEPARINOID [Concomitant]
     Indication: Prophylaxis
     Dosage: AS NEEDED
     Route: 061
     Dates: start: 20220802
  10. HEPARINOID [Concomitant]
  11. GENTAMICIN SULFATE [Concomitant]
     Active Substance: GENTAMICIN SULFATE
     Indication: Folliculitis
     Dosage: AS NEEDED
     Route: 061
     Dates: start: 20220807
  12. GENTAMICIN SULFATE [Concomitant]
     Active Substance: GENTAMICIN SULFATE
  13. VONOPRAZAN FUMARATE [Concomitant]
     Active Substance: VONOPRAZAN FUMARATE
     Indication: Prophylaxis
     Dosage: DAILY; PER DAY
     Route: 048
     Dates: start: 20220809, end: 20220830
  14. VONOPRAZAN FUMARATE [Concomitant]
     Active Substance: VONOPRAZAN FUMARATE
  15. ACETAMINOPHEN [Concomitant]
     Active Substance: ACETAMINOPHEN
     Indication: Drug eruption
     Dosage: AS NEEDED
     Route: 048
     Dates: start: 20220818, end: 20220826
  16. ACETAMINOPHEN [Concomitant]
     Active Substance: ACETAMINOPHEN
  17. DIFLUPREDNATE [Concomitant]
     Active Substance: DIFLUPREDNATE
     Indication: Drug eruption
     Dosage: AS NEEDED
     Route: 061
     Dates: start: 20220818
  18. DIFLUPREDNATE [Concomitant]
     Active Substance: DIFLUPREDNATE
  19. APREPITANT [Concomitant]
     Active Substance: APREPITANT
     Indication: Product used for unknown indication
     Route: 048
     Dates: start: 20220811, end: 20220812
  20. APREPITANT [Concomitant]
     Active Substance: APREPITANT
  21. SENNOSIDE A B CALCIUM [Concomitant]
     Indication: Constipation
     Dosage: AS NEEDED
     Route: 048
     Dates: start: 20220723

REACTIONS (1)
  - Cholangitis [Recovered/Resolved]

NARRATIVE: CASE EVENT DATE: 20220826
